FAERS Safety Report 24846934 (Version 1)
Quarter: 2025Q1

REPORT INFORMATION
  Report Type: Report from Study
  Country: US (occurrence: US)
  Receive Date: 20250115
  Receipt Date: 20250115
  Transmission Date: 20250409
  Serious: Yes (Hospitalization)
  Sender: HLS THERAPEUTICS
  Company Number: US-HLS-202402537

PATIENT
  Age: 42 Year
  Sex: Male

DRUGS (1)
  1. CLOZAPINE [Suspect]
     Active Substance: CLOZAPINE
     Indication: Product used for unknown indication
     Route: 065

REACTIONS (7)
  - Constipation [Unknown]
  - Therapy cessation [Recovered/Resolved]
  - Drooling [Unknown]
  - Aggression [Unknown]
  - Adverse event [Unknown]
  - Psychotic disorder [Unknown]
  - Somnolence [Unknown]
